FAERS Safety Report 21540079 (Version 2)
Quarter: 2022Q4

REPORT INFORMATION
  Report Type: Spontaneous
  Country: TN (occurrence: None)
  Receive Date: 20221102
  Receipt Date: 20221130
  Transmission Date: 20230113
  Serious: Yes (Other)
  Sender: FDA-Public Use
  Company Number: TN-ROCHE-3209532

PATIENT

DRUGS (1)
  1. TECENTRIQ [Suspect]
     Active Substance: ATEZOLIZUMAB
     Indication: Small cell lung cancer
     Dosage: ON 09/MAY/2022 RECEIVED CYCLE 2 AND C3 AT 1200 MG, C6 ON 08/AUG/2022, C7 ON 17/OCT/2022
     Route: 065
     Dates: start: 20220314

REACTIONS (2)
  - Metastases to central nervous system [Unknown]
  - Metastases to adrenals [Unknown]
